FAERS Safety Report 11595890 (Version 1)
Quarter: 2015Q4

REPORT INFORMATION
  Report Type: Spontaneous
  Country: US (occurrence: None)
  Receive Date: 20151005
  Receipt Date: 20151005
  Transmission Date: 20160304
  Serious: No
  Sender: FDA-Public Use
  Company Number: None

PATIENT
  Age: 16 Year
  Sex: Male
  Weight: 65.77 kg

DRUGS (3)
  1. PROZAC [Suspect]
     Active Substance: FLUOXETINE HYDROCHLORIDE
     Dosage: QAM  PILLS
     Route: 048
     Dates: start: 20150916, end: 20150917
  2. TYLENOL [Concomitant]
     Active Substance: ACETAMINOPHEN
  3. ZYPREXA [Concomitant]
     Active Substance: OLANZAPINE

REACTIONS (1)
  - Headache [None]

NARRATIVE: CASE EVENT DATE: 20150917
